FAERS Safety Report 9275044 (Version 2)
Quarter: 2013Q2

REPORT INFORMATION
  Report Type: Spontaneous
  Country: US (occurrence: US)
  Receive Date: 20130507
  Receipt Date: 20130510
  Transmission Date: 20140414
  Serious: Yes (Death)
  Sender: FDA-Public Use
  Company Number: US-PFIZER INC-2013141054

PATIENT
  Age: 65 Year
  Sex: Female

DRUGS (1)
  1. SUTENT [Suspect]
     Indication: HEPATIC CANCER
     Dosage: 12.5 MG, UNK
     Dates: start: 20111031

REACTIONS (2)
  - Death [Fatal]
  - Off label use [Unknown]
